FAERS Safety Report 6707060-3 (Version None)
Quarter: 2010Q2

REPORT INFORMATION
  Report Type: 
  Country: None (occurrence: None)
  Receive Date: 20100503
  Receipt Date: 20100421
  Transmission Date: 20101027
  Serious: Yes (Other)
  Sender: FDA-Public Use
  Company Number: US-WATSON-2010-04054

PATIENT
  Sex: Female

DRUGS (5)
  1. METFORMIN HCL [Suspect]
     Indication: BLOOD GLUCOSE INCREASED
     Dosage: 500 MG, DAILY
     Route: 048
     Dates: start: 20090201, end: 20090901
  2. LISINOPRIL [Concomitant]
     Indication: BLOOD PRESSURE INCREASED
     Dosage: ^MANY YEARS^
     Route: 048
  3. COD LIVER OIL [Concomitant]
     Indication: BLOOD CHOLESTEROL INCREASED
     Dosage: 1 TSP DAILY (STOPPED IN 2010)
     Route: 065
     Dates: start: 20080101
  4. RED YEAST RICE [Concomitant]
     Indication: BLOOD CHOLESTEROL INCREASED
     Dosage: 2 CAP EMPTIED OUT DAILY (STOPPED 2010)
     Route: 065
  5. SOY MILK [Concomitant]
     Indication: SUPPLEMENTATION THERAPY
     Dosage: 1-2 CUPS DAILY
     Route: 048

REACTIONS (4)
  - DEAFNESS [None]
  - DEAFNESS NEUROSENSORY [None]
  - EAR DISCOMFORT [None]
  - HYPOACUSIS [None]
